FAERS Safety Report 6706138-8 (Version None)
Quarter: 2010Q2

REPORT INFORMATION
  Report Type: 
  Country: None (occurrence: None)
  Receive Date: 20100503
  Receipt Date: 20100421
  Transmission Date: 20101027
  Serious: Yes (Other)
  Sender: FDA-Public Use
  Company Number: CA-PFIZER INC-2010050933

PATIENT
  Age: 61 Year
  Sex: Male

DRUGS (5)
  1. ZELDOX [Suspect]
     Dosage: 40 MG, 2X/DAY
     Dates: start: 20100416
  2. AMITRIPTYLINE [Concomitant]
     Dosage: UNK
  3. LAMOTRIGINE [Concomitant]
     Dosage: UNK
  4. TIAZAC [Concomitant]
     Dosage: UNK
  5. SEROQUEL [Concomitant]
     Dosage: 1 PILL AT BEDTIME

REACTIONS (3)
  - ABNORMAL DREAMS [None]
  - INSOMNIA [None]
  - RESTLESS LEGS SYNDROME [None]
